FAERS Safety Report 14936859 (Version 1)
Quarter: 2018Q2

REPORT INFORMATION
  Report Type: Other
  Country: NO (occurrence: NO)
  Receive Date: 20180525
  Receipt Date: 20180525
  Transmission Date: 20180711
  Serious: Yes (Hospitalization)
  Sender: FDA-Public Use
  Company Number: NO-ASTELLAS-2018US023311

PATIENT
  Age: 84 Year
  Sex: Female

DRUGS (11)
  1. VORTIOXETINE. [Interacting]
     Active Substance: VORTIOXETINE
     Indication: AMNESIA
  2. LEVAXIN [Concomitant]
     Active Substance: LEVOTHYROXINE SODIUM
     Indication: HYPOTHYROIDISM
     Dosage: 100MG,DAILY ON MONDAYS,WEDNESDAYS, FRIDAYS AND 150MG,TUESDAYS,THURSDAYS,SATURDAYS
     Route: 048
  3. ALBYL-E [Concomitant]
     Active Substance: ASPIRIN\MAGNESIUM OXIDE
     Indication: ANGINA UNSTABLE
     Route: 048
     Dates: start: 200503
  4. ZYPREXA [Interacting]
     Active Substance: OLANZAPINE
     Indication: RESTLESSNESS
     Route: 048
     Dates: start: 20180413, end: 20180416
  5. VORTIOXETINE. [Interacting]
     Active Substance: VORTIOXETINE
     Indication: DEPRESSION
     Route: 048
     Dates: start: 20170519, end: 20180418
  6. TRIATEC                            /00885601/ [Concomitant]
     Active Substance: RAMIPRIL
     Indication: CARDIAC FAILURE
     Route: 048
     Dates: start: 201802
  7. DIVISUN [Concomitant]
     Indication: VITAMIN D DEFICIENCY
     Route: 048
  8. NIFEDIPINE. [Concomitant]
     Active Substance: NIFEDIPINE
     Indication: HYPERTENSION
     Route: 048
     Dates: end: 20180417
  9. ZYPREXA [Interacting]
     Active Substance: OLANZAPINE
     Indication: HALLUCINATION
  10. BETMIGA [Suspect]
     Active Substance: MIRABEGRON
     Indication: URINARY INCONTINENCE
     Route: 048
     Dates: end: 20180417
  11. SIMVASTATIN. [Concomitant]
     Active Substance: SIMVASTATIN
     Indication: CEREBROVASCULAR ACCIDENT PROPHYLAXIS
     Route: 048

REACTIONS (2)
  - Drug interaction [Recovered/Resolved with Sequelae]
  - Epilepsy [Recovered/Resolved with Sequelae]

NARRATIVE: CASE EVENT DATE: 20180416
